FAERS Safety Report 5028595-8 (Version None)
Quarter: 2006Q2

REPORT INFORMATION
  Report Type: 
  Country: None (occurrence: None)
  Receive Date: 20060615
  Receipt Date: 20060615
  Transmission Date: 20061013
  Serious: No
  Sender: FDA-Public Use
  Company Number: None

PATIENT
  Age: 82 Year
  Sex: Female
  Weight: 54.4316 kg

DRUGS (2)
  1. EFFEXOR XR [Suspect]
     Indication: GENERALISED ANXIETY DISORDER
     Dosage: PO
     Route: 048
     Dates: start: 20060401, end: 20060614
  2. EFFEXOR XR [Suspect]
     Indication: MAJOR DEPRESSION
     Dosage: PO
     Route: 048
     Dates: start: 20060401, end: 20060614

REACTIONS (2)
  - DELUSION [None]
  - HALLUCINATION [None]
